FAERS Safety Report 10174536 (Version 3)
Quarter: 2014Q3

REPORT INFORMATION
  Report Type: Spontaneous
  Country: JP (occurrence: JP)
  Receive Date: 20140515
  Receipt Date: 20140702
  Transmission Date: 20150326
  Serious: Yes (Other)
  Sender: FDA-Public Use
  Company Number: JP-PFIZER INC-2014128529

PATIENT
  Age: 67 Year
  Sex: Male

DRUGS (4)
  1. GASTER [Concomitant]
     Active Substance: FAMOTIDINE
     Dosage: UNK
     Route: 048
     Dates: start: 201107
  2. MICARDIS [Concomitant]
     Active Substance: TELMISARTAN
     Dosage: 20 MG, DAILY
     Route: 048
     Dates: start: 200704
  3. KAZMARIN [Suspect]
     Active Substance: DOXAZOSIN MESYLATE
     Indication: HYPERTENSION
     Dosage: 2 MG, DAILY
     Route: 048
     Dates: start: 201006
  4. CARDENALIN [Suspect]
     Active Substance: DOXAZOSIN MESYLATE
     Indication: HYPERTENSION
     Dosage: 2 MG, DAILY
     Route: 048
     Dates: start: 200111, end: 201005

REACTIONS (2)
  - Vision blurred [Unknown]
  - Cataract [Unknown]
